FAERS Safety Report 5233063-4 (Version None)
Quarter: 2007Q1

REPORT INFORMATION
  Report Type: 
  Country: None (occurrence: None)
  Receive Date: 20061204
  Receipt Date: 20061020
  Transmission Date: 20070707
  Serious: No
  Sender: FDA-Public Use
  Company Number: 2006-BP-11387BP

PATIENT
  Age: 71 Year
  Sex: Female

DRUGS (7)
  1. SPIRIVA [Suspect]
     Indication: CHRONIC OBSTRUCTIVE PULMONARY DISEASE
     Dosage: 18 MCG (18 MCG,1 IN 1 D),IH
     Dates: start: 20040101
  2. OXYGEN (OXYGEN) [Concomitant]
  3. VERAPAMIL [Concomitant]
  4. FOSINOPRIL SODIUM [Concomitant]
  5. LASIX [Concomitant]
  6. COUMADIN [Concomitant]
  7. COMBIVENT (COMBIVENT /01261001/) [Concomitant]

REACTIONS (1)
  - VISUAL ACUITY REDUCED [None]
